FAERS Safety Report 23057748 (Version 5)
Quarter: 2024Q2

REPORT INFORMATION
  Report Type: Spontaneous
  Country: JP (occurrence: JP)
  Receive Date: 20231012
  Receipt Date: 20240411
  Transmission Date: 20240716
  Serious: Yes (Life-Threatening, Hospitalization, Other)
  Sender: FDA-Public Use
  Company Number: None

PATIENT

DRUGS (13)
  1. BENLYSTA [Suspect]
     Active Substance: BELIMUMAB
     Indication: Systemic lupus erythematosus
     Dosage: 200 MG, WE
     Route: 058
     Dates: start: 20200822, end: 20230930
  2. BENLYSTA [Suspect]
     Active Substance: BELIMUMAB
     Dosage: UNK
     Dates: start: 20231104
  3. PLAQUENIL [Suspect]
     Active Substance: HYDROXYCHLOROQUINE SULFATE
     Indication: Systemic lupus erythematosus
     Dosage: 200 MG
     Route: 048
     Dates: start: 20200627
  4. PREDONINE [Suspect]
     Active Substance: PREDNISOLONE
     Indication: Systemic lupus erythematosus
     Dosage: 5 MG, QD
     Route: 048
  5. PREDONINE [Suspect]
     Active Substance: PREDNISOLONE
     Dosage: 25 MG
     Route: 048
  6. PREDONINE [Suspect]
     Active Substance: PREDNISOLONE
     Dosage: 2 MG
     Route: 048
  7. PREDONINE [Suspect]
     Active Substance: PREDNISOLONE
     Dosage: 1 MG
     Route: 048
  8. EDOXABAN TOSYLATE [Suspect]
     Active Substance: EDOXABAN TOSYLATE
     Indication: Atrial fibrillation
     Dosage: 15 MG, 1D
     Route: 048
  9. ROSUVASTATIN [Concomitant]
     Active Substance: ROSUVASTATIN
     Indication: Hyperlipidaemia
     Dosage: 2.5 MG, 1D
     Route: 048
  10. TOPIROXOSTAT [Concomitant]
     Active Substance: TOPIROXOSTAT
     Indication: Hyperuricaemia
     Dosage: 60 MG, BID
     Route: 048
  11. AMLODIPINE BESYLATE [Concomitant]
     Active Substance: AMLODIPINE BESYLATE
     Indication: Hypertension
     Dosage: 5 MG, BID
     Route: 048
  12. ICOSAPENT ETHYL [Concomitant]
     Active Substance: ICOSAPENT ETHYL
     Indication: Hyperlipidaemia
     Dosage: 900 MG, BID
     Route: 048
  13. ALENDRONATE SODIUM [Concomitant]
     Active Substance: ALENDRONATE SODIUM
     Indication: Osteoporosis
     Dosage: 35 MG, WE
     Route: 048

REACTIONS (7)
  - Colon cancer [Recovered/Resolved with Sequelae]
  - Haematochezia [Recovering/Resolving]
  - Gastrointestinal wall thickening [Recovered/Resolved with Sequelae]
  - Colorectal adenoma [Recovered/Resolved with Sequelae]
  - Tumour invasion [Recovered/Resolved with Sequelae]
  - Large intestine polyp [Recovered/Resolved]
  - Diverticulum intestinal [Not Recovered/Not Resolved]

NARRATIVE: CASE EVENT DATE: 20230901
